FAERS Safety Report 12371905 (Version 1)
Quarter: 2016Q2

REPORT INFORMATION
  Report Type: Not Available
  Country: None (occurrence: US)
  Receive Date: 20160516
  Receipt Date: 20160516
  Transmission Date: 20160815
  Serious: No
  Sender: FDA-Public Use
  Company Number: US-AKORN-9183

PATIENT
  Age: 53 Year
  Sex: Male

DRUGS (1)
  1. CLOBETASOL PROPIONATE OINTMENT, USP, 0.05% [Suspect]
     Active Substance: CLOBETASOL PROPIONATE

REACTIONS (1)
  - Burning sensation [Recovered/Resolved]
